FAERS Safety Report 23266926 (Version 1)
Quarter: 2023Q4

REPORT INFORMATION
  Report Type: Spontaneous
  Country: CN (occurrence: CN)
  Receive Date: 20231206
  Receipt Date: 20231206
  Transmission Date: 20240109
  Serious: Yes (Hospitalization)
  Sender: FDA-Public Use
  Company Number: CN-BAYER-2023A170663

PATIENT
  Age: 23 Year
  Sex: Female

DRUGS (3)
  1. MIRENA [Suspect]
     Active Substance: LEVONORGESTREL
     Indication: Carbohydrate antigen 125 increased
     Dosage: 20?G/DAY
     Route: 015
     Dates: start: 20231121, end: 20231125
  2. DIANE (CYPROTERONE ACETATE\ETHINYL ESTRADIOL) [Suspect]
     Active Substance: CYPROTERONE ACETATE\ETHINYL ESTRADIOL
     Indication: Heavy menstrual bleeding
     Dosage: 1 DF, BID
     Route: 048
     Dates: start: 20231121, end: 20231125
  3. DIANE (CYPROTERONE ACETATE\ETHINYL ESTRADIOL) [Suspect]
     Active Substance: CYPROTERONE ACETATE\ETHINYL ESTRADIOL
     Indication: Dysmenorrhoea

REACTIONS (8)
  - Arteriospasm coronary [None]
  - Breast pain [None]
  - Troponin I increased [None]
  - Coronary artery disease [None]
  - Myoglobin blood increased [None]
  - Off label use [None]
  - Off label use of device [None]
  - Device use issue [None]

NARRATIVE: CASE EVENT DATE: 20231121
